FAERS Safety Report 6501701-1 (Version None)
Quarter: 2009Q4

REPORT INFORMATION
  Report Type: 
  Country: None (occurrence: None)
  Receive Date: 20091216
  Receipt Date: 20091012
  Transmission Date: 20100525
  Serious: No
  Sender: FDA-Public Use
  Company Number: US-AMGEN-KDL360487

PATIENT
  Sex: Female

DRUGS (10)
  1. ARANESP [Suspect]
     Indication: RENAL FAILURE CHRONIC
     Route: 058
     Dates: start: 20090611, end: 20090723
  2. COREG [Concomitant]
     Dates: start: 20070101
  3. COUMADIN [Concomitant]
     Dates: start: 20070101
  4. PRILOSEC [Concomitant]
  5. METFORMIN HCL [Concomitant]
     Dates: start: 20070101
  6. BETOPTIC [Concomitant]
     Dates: start: 20070101
  7. ASPIRIN [Concomitant]
     Dates: start: 20070101
  8. LIPITOR [Concomitant]
     Dates: start: 20070101
  9. LANTUS [Concomitant]
     Dates: start: 20070101
  10. LISINOPRIL [Concomitant]
     Dates: start: 20070101

REACTIONS (1)
  - INTERNATIONAL NORMALISED RATIO INCREASED [None]
